FAERS Safety Report 10453081 (Version 1)
Quarter: 2014Q3

REPORT INFORMATION
  Report Type: Spontaneous
  Country: US (occurrence: None)
  Receive Date: 20140912
  Receipt Date: 20140912
  Transmission Date: 20150326
  Serious: Yes (Life-Threatening)
  Sender: FDA-Public Use
  Company Number: None

PATIENT
  Age: 71 Year
  Sex: Female
  Weight: 94.8 kg

DRUGS (1)
  1. TELMISARTAN 80 MG WATSON PHARMACEUTICALS [Suspect]
     Active Substance: TELMISARTAN
     Indication: BLOOD PRESSURE INADEQUATELY CONTROLLED
     Route: 048
     Dates: start: 20140812, end: 20140910

REACTIONS (9)
  - Product quality issue [None]
  - Cough [None]
  - Product coating issue [None]
  - Vomiting [None]
  - Dyspnoea [None]
  - Product substitution issue [None]
  - Eructation [None]
  - Choking [None]
  - Retching [None]

NARRATIVE: CASE EVENT DATE: 20140910
